FAERS Safety Report 8195898-8 (Version None)
Quarter: 2012Q1

REPORT INFORMATION
  Report Type: 
  Country: None (occurrence: None)
  Receive Date: 20120308
  Receipt Date: 20120228
  Transmission Date: 20120608
  Serious: Yes (Other)
  Sender: FDA-Public Use
  Company Number: US-ASTRAZENECA-2012SE13729

PATIENT
  Age: 69 Year
  Sex: Male
  Weight: 90.7 kg

DRUGS (1)
  1. NEXIUM [Suspect]
     Indication: GASTRIC ULCER
     Route: 048

REACTIONS (11)
  - HELICOBACTER INFECTION [None]
  - DYSPEPSIA [None]
  - NAUSEA [None]
  - FLATULENCE [None]
  - OFF LABEL USE [None]
  - HICCUPS [None]
  - ULCER [None]
  - ABDOMINAL DISTENSION [None]
  - ERUCTATION [None]
  - ABDOMINAL PAIN [None]
  - CONSTIPATION [None]
